FAERS Safety Report 16393686 (Version 1)
Quarter: 2019Q2

REPORT INFORMATION
  Report Type: Spontaneous
  Country: US (occurrence: US)
  Receive Date: 20190605
  Receipt Date: 20190605
  Transmission Date: 20190711
  Serious: No
  Sender: FDA-Public Use
  Company Number: US-PFIZER INC-2019232090

PATIENT
  Sex: Female

DRUGS (1)
  1. ADVIL [Suspect]
     Active Substance: IBUPROFEN
     Indication: ARTHRITIS
     Dosage: 4 DF, DAILY (TAKE 4 OF THE ADVIL TABLETS A DAY )

REACTIONS (2)
  - Product package associated injury [Unknown]
  - Product packaging issue [Unknown]
